FAERS Safety Report 6356200-7 (Version None)
Quarter: 2009Q3

REPORT INFORMATION
  Report Type: 
  Country: None (occurrence: None)
  Receive Date: 20090911
  Receipt Date: 20090911
  Transmission Date: 20100115
  Serious: Yes (Other)
  Sender: FDA-Public Use
  Company Number: None

PATIENT
  Age: 75 Year
  Sex: Male
  Weight: 97.0698 kg

DRUGS (14)
  1. RITUXAN [Suspect]
     Indication: CHRONIC LYMPHOCYTIC LEUKAEMIA
     Dosage: 800 MG X 1 DOSE IV
     Route: 042
     Dates: start: 20090910, end: 20090910
  2. LISINOPRIL AND HYDROCHLOROTHIAZIDE [Concomitant]
  3. AMLODIPINE [Concomitant]
  4. ACTOS [Concomitant]
  5. OXYBUTYNIN CHLORIDE [Concomitant]
  6. TERAZOSIN HCL [Concomitant]
  7. PLAVIX [Concomitant]
  8. M.V.I. [Concomitant]
  9. B COMPLEX WITH C DAILY [Concomitant]
  10. FERROUS SULFATE TAB [Concomitant]
  11. PREDNISONE [Concomitant]
  12. LANTUS [Concomitant]
  13. APAP TAB [Concomitant]
  14. BENADRYL [Concomitant]

REACTIONS (4)
  - CHEST PAIN [None]
  - CHILLS [None]
  - DYSPNOEA [None]
  - INFUSION RELATED REACTION [None]
